FAERS Safety Report 17838967 (Version 1)
Quarter: 2020Q2

REPORT INFORMATION
  Report Type: Report from Study
  Country: JP (occurrence: JP)
  Receive Date: 20200529
  Receipt Date: 20200529
  Transmission Date: 20200714
  Serious: Yes (Hospitalization, Other)
  Sender: FDA-Public Use
  Company Number: JP-ADVANZ PHARMA-GSH201806-001903

PATIENT

DRUGS (45)
  1. PREDNISOLONE. [Suspect]
     Active Substance: PREDNISOLONE
     Dosage: 45 MG, QD
     Route: 048
     Dates: start: 20170405, end: 20170417
  2. PREDNISOLONE. [Suspect]
     Active Substance: PREDNISOLONE
     Dosage: 20 MG, QD
     Route: 048
     Dates: end: 20170818
  3. PREDNISOLONE. [Suspect]
     Active Substance: PREDNISOLONE
     Dosage: 17.5 MG, QD
     Route: 048
     Dates: end: 20170901
  4. PREDNISOLONE. [Suspect]
     Active Substance: PREDNISOLONE
     Dosage: 10 MG, QD
     Route: 048
     Dates: end: 20171010
  5. PREDNISOLONE. [Suspect]
     Active Substance: PREDNISOLONE
     Dosage: 4 MG, QD
     Route: 048
     Dates: end: 20180517
  6. RITUXIMAB. [Suspect]
     Active Substance: RITUXIMAB
     Indication: SYSTEMIC LUPUS ERYTHEMATOSUS
     Dosage: 700 MG, QD
     Route: 041
     Dates: end: 20170509
  7. RITUXIMAB. [Suspect]
     Active Substance: RITUXIMAB
     Dosage: 700 MG, QD
     Route: 041
     Dates: end: 20170502
  8. SLOW K [Concomitant]
     Active Substance: POTASSIUM CHLORIDE
     Indication: INVESTIGATION
  9. NIFEDIPINE. [Concomitant]
     Active Substance: NIFEDIPINE
     Indication: PRODUCT USED FOR UNKNOWN INDICATION
     Dosage: UNK
  10. MAGMITT [Concomitant]
     Active Substance: MAGNESIUM OXIDE
     Indication: PROPHYLAXIS
     Dosage: UNK
  11. PREDNISOLONE. [Suspect]
     Active Substance: PREDNISOLONE
     Indication: SYSTEMIC LUPUS ERYTHEMATOSUS
     Dosage: 60 MG, QD
     Route: 048
     Dates: start: 20170329, end: 20170404
  12. RITUXIMAB. [Suspect]
     Active Substance: RITUXIMAB
     Dosage: 700 MG, QD
     Route: 041
     Dates: end: 20170413
  13. DANAZOL. [Suspect]
     Active Substance: DANAZOL
     Dosage: 200 MG, QD
     Route: 048
     Dates: end: 20171115
  14. GLYCYRON (DL-METHIONINE;GLYCINE;GLYCYRRHIZIC ACID, AMMONIUM SALT) [Suspect]
     Active Substance: AMMONIUM GLYCYRRHIZATE\GLYCINE\RACEMETHIONINE
     Indication: PRODUCT USED FOR UNKNOWN INDICATION
     Dosage: 9 DOSAGE FORM, QD
     Route: 048
     Dates: end: 20180222
  15. PREDNISOLONE. [Suspect]
     Active Substance: PREDNISOLONE
     Dosage: 35 MG, QD
     Route: 048
     Dates: start: 20170626, end: 20170709
  16. PREDNISOLONE. [Suspect]
     Active Substance: PREDNISOLONE
     Dosage: 12.5 MG, QD
     Route: 048
     Dates: end: 20170926
  17. PREDNISOLONE. [Suspect]
     Active Substance: PREDNISOLONE
     Dosage: 5 MG, QD
     Route: 048
     Dates: end: 20180412
  18. PREDNISOLONE. [Suspect]
     Active Substance: PREDNISOLONE
     Dosage: 3 MG, QD
     Route: 048
  19. ADONA  [CARBAZOCHROME SODIUM SULFONATE] [Concomitant]
     Active Substance: CARBAZOCHROME SODIUM SULFONATE
     Indication: PRODUCT USED FOR UNKNOWN INDICATION
     Dosage: UNK
  20. PREDNISOLONE. [Suspect]
     Active Substance: PREDNISOLONE
     Dosage: 45 MG, QD
     Route: 048
     Dates: start: 20170530, end: 20170609
  21. PREDNISOLONE. [Suspect]
     Active Substance: PREDNISOLONE
     Dosage: 8 MG, QD
     Route: 048
     Dates: end: 20171212
  22. SAMTIREL [Concomitant]
     Active Substance: ATOVAQUONE
     Indication: PROPHYLAXIS
     Dosage: UNK
  23. DANAZOL. [Suspect]
     Active Substance: DANAZOL
     Dosage: 300 MG, QD
     Route: 048
     Dates: end: 20170618
  24. SAMTIREL [Concomitant]
     Active Substance: ATOVAQUONE
     Indication: INVESTIGATION
  25. HYDROXYCHLOROQUINE SULFATE (AUTHORIZED GENERIC),PLAQUENIL [Suspect]
     Active Substance: HYDROXYCHLOROQUINE SULFATE
     Indication: SYSTEMIC LUPUS ERYTHEMATOSUS
     Dosage: 200 MG, QOD
     Route: 048
     Dates: start: 20170509
  26. PREDNISOLONE. [Suspect]
     Active Substance: PREDNISOLONE
     Dosage: 60 MG, QD
     Route: 048
     Dates: start: 20170418, end: 20170529
  27. PREDNISOLONE. [Suspect]
     Active Substance: PREDNISOLONE
     Dosage: 40 MG, QD
     Route: 048
     Dates: start: 20170610, end: 20170625
  28. PREDNISOLONE. [Suspect]
     Active Substance: PREDNISOLONE
     Dosage: 6 MG, QD
     Route: 048
     Dates: end: 20180227
  29. DANAZOL. [Suspect]
     Active Substance: DANAZOL
     Indication: PRODUCT USED FOR UNKNOWN INDICATION
     Dosage: 200 MG, QD
     Route: 048
     Dates: end: 20170526
  30. DANAZOL. [Suspect]
     Active Substance: DANAZOL
     Dosage: 400 MG, QD
     Route: 048
     Dates: end: 20170613
  31. DANAZOL. [Suspect]
     Active Substance: DANAZOL
     Dosage: 100 MG, QD
     Route: 048
     Dates: end: 20171212
  32. MAGMITT [Concomitant]
     Active Substance: MAGNESIUM OXIDE
     Indication: INVESTIGATION
  33. HYDROXYCHLOROQUINE SULFATE (AUTHORIZED GENERIC),PLAQUENIL [Suspect]
     Active Substance: HYDROXYCHLOROQUINE SULFATE
     Dosage: 400 MG, QOD
     Route: 048
     Dates: start: 20170510
  34. HALIZON [Concomitant]
     Active Substance: AMPHOTERICIN B
     Indication: PRODUCT USED FOR UNKNOWN INDICATION
     Dosage: UNK
  35. JANUVIA [Concomitant]
     Active Substance: SITAGLIPTIN PHOSPHATE
     Indication: INVESTIGATION
  36. PREDNISOLONE. [Suspect]
     Active Substance: PREDNISOLONE
     Dosage: 30 MG, QD
     Route: 048
     Dates: start: 20170710, end: 20170721
  37. PREDNISOLONE. [Suspect]
     Active Substance: PREDNISOLONE
     Dosage: 25 MG, QD
     Route: 048
     Dates: start: 20170722, end: 20170804
  38. PREDNISOLONE. [Suspect]
     Active Substance: PREDNISOLONE
     Dosage: 15 MG, QD
     Route: 048
     Dates: start: 20170902, end: 20170912
  39. PREDNISOLONE. [Suspect]
     Active Substance: PREDNISOLONE
     Dosage: 9 MG, QD
     Route: 048
     Dates: end: 20171115
  40. PREDNISOLONE. [Suspect]
     Active Substance: PREDNISOLONE
     Dosage: 7 MG, QD
     Route: 048
     Dates: end: 20180123
  41. RITUXIMAB. [Suspect]
     Active Substance: RITUXIMAB
     Dosage: 700 MG, QD
     Route: 041
     Dates: end: 20170420
  42. DANAZOL. [Suspect]
     Active Substance: DANAZOL
     Dosage: 300 MG, QD
     Route: 048
     Dates: end: 20170604
  43. SLOW K [Concomitant]
     Active Substance: POTASSIUM CHLORIDE
     Indication: PROPHYLAXIS
     Dosage: UNK
  44. FUROSEMIDE. [Concomitant]
     Active Substance: FUROSEMIDE
     Indication: PRODUCT USED FOR UNKNOWN INDICATION
     Dosage: UNK
  45. JANUVIA [Concomitant]
     Active Substance: SITAGLIPTIN PHOSPHATE
     Indication: PROPHYLAXIS
     Dosage: UNK
     Dates: start: 20170711, end: 20180228

REACTIONS (6)
  - Purulence [Recovered/Resolved]
  - Cataract [Not Recovered/Not Resolved]
  - Fluid retention [Recovered/Resolved]
  - Spondylitis [Recovered/Resolved]
  - Herpes zoster [Recovered/Resolved]
  - Hepatic enzyme increased [Recovered/Resolved]

NARRATIVE: CASE EVENT DATE: 20170602
